FAERS Safety Report 18764582 (Version 2)
Quarter: 2021Q2

REPORT INFORMATION
  Report Type: Report from Study
  Country: EG (occurrence: EG)
  Receive Date: 20210120
  Receipt Date: 20210402
  Transmission Date: 20210717
  Serious: Yes (Death, Hospitalization, Other)
  Sender: FDA-Public Use
  Company Number: EG-SEAGEN-2021SGN00192

PATIENT
  Sex: Female

DRUGS (1)
  1. BRENTUXIMAB VEDOTIN [Suspect]
     Active Substance: BRENTUXIMAB VEDOTIN
     Indication: HODGKIN^S DISEASE REFRACTORY
     Dosage: UNK UNK, Q3WEEKS
     Route: 042
     Dates: start: 20201225

REACTIONS (3)
  - Decreased appetite [Unknown]
  - Death [Fatal]
  - Blood potassium decreased [Unknown]
